FAERS Safety Report 18049256 (Version 1)
Quarter: 2020Q3

REPORT INFORMATION
  Report Type: Spontaneous
  Country: US (occurrence: US)
  Receive Date: 20200720
  Receipt Date: 20200720
  Transmission Date: 20201103
  Serious: Yes (Death)
  Sender: FDA-Public Use
  Company Number: None

PATIENT
  Sex: Male

DRUGS (31)
  1. HYDROXYCHLOR [Concomitant]
     Active Substance: HYDROXYCHLOROQUINE
  2. LEVOFLOXACIN. [Concomitant]
     Active Substance: LEVOFLOXACIN
  3. LORAZEPAM. [Concomitant]
     Active Substance: LORAZEPAM
  4. TRAZODONE [Concomitant]
     Active Substance: TRAZODONE HYDROCHLORIDE
  5. XIFAXAN [Concomitant]
     Active Substance: RIFAXIMIN
  6. GAVILYTE ? C [Concomitant]
     Active Substance: POLYETHYLENE GLYCOL 3350\POTASSIUM CHLORIDE\SODIUM BICARBONATE\SODIUM CHLORIDE\SODIUM SULFATE ANHYDROUS
  7. METHYLPHENID [Concomitant]
     Active Substance: METHYLPHENIDATE
  8. ZARXIO [Suspect]
     Active Substance: FILGRASTIM-SNDZ
     Dosage: ?          OTHER DOSE:1 SYR;?
     Route: 058
     Dates: start: 20200711
  9. BACITRACIN. [Concomitant]
     Active Substance: BACITRACIN
  10. BACLOFEN. [Concomitant]
     Active Substance: BACLOFEN
  11. FLUTICASONE. [Concomitant]
     Active Substance: FLUTICASONE
  12. FUROSEMIDE. [Concomitant]
     Active Substance: FUROSEMIDE
  13. HYDROCHLOROT [Concomitant]
     Active Substance: HYDROCHLOROTHIAZIDE
  14. IPRATROPIUM SOL [Concomitant]
  15. LIDOCAINE. [Concomitant]
     Active Substance: LIDOCAINE
  16. PREVACID [Concomitant]
     Active Substance: LANSOPRAZOLE
  17. SYNTHROID [Concomitant]
     Active Substance: LEVOTHYROXINE SODIUM
  18. ZARXIO [Suspect]
     Active Substance: FILGRASTIM-SNDZ
     Indication: PRODUCT USED FOR UNKNOWN INDICATION
     Dosage: ?          OTHER DOSE:1 SYR;?
     Route: 058
     Dates: start: 20200711
  19. FYCOMPA [Concomitant]
     Active Substance: PERAMPANEL
  20. LEVALBUTEROL NEB [Concomitant]
  21. TRANEX ACID [Concomitant]
  22. AMANTADINE. [Concomitant]
     Active Substance: AMANTADINE HYDROCHLORIDE
  23. ANDROLGEL [Concomitant]
  24. AZITHROMYCIN ANHYDROUS. [Concomitant]
     Active Substance: AZITHROMYCIN ANHYDROUS
  25. BRIVIACT [Concomitant]
     Active Substance: BRIVARACETAM
  26. METOCLOPRAM [Concomitant]
     Active Substance: METOCLOPRAMIDE
  27. NEUPRO [Concomitant]
     Active Substance: ROTIGOTINE
  28. DIAZEPAM. [Concomitant]
     Active Substance: DIAZEPAM
  29. LAMOTRIGINE. [Concomitant]
     Active Substance: LAMOTRIGINE
  30. PROCTOZONE CRE [Concomitant]
  31. SMZ/TMP DS [Concomitant]
     Active Substance: SULFAMETHOXAZOLE\TRIMETHOPRIM

REACTIONS (1)
  - Death [None]
